FAERS Safety Report 12823886 (Version 1)
Quarter: 2016Q4

REPORT INFORMATION
  Report Type: Spontaneous
  Country: US (occurrence: US)
  Receive Date: 20161007
  Receipt Date: 20161007
  Transmission Date: 20170207
  Serious: Yes (Death)
  Sender: FDA-Public Use
  Company Number: US-INDIVIOR LIMITED-INDV-090504-2016

PATIENT
  Age: 36 Year
  Sex: Male

DRUGS (3)
  1. HEROIN [Suspect]
     Active Substance: DIACETYLMORPHINE
     Indication: PRODUCT USED FOR UNKNOWN INDICATION
     Dosage: UNK
     Route: 065
  2. METHAMPHETAMINE [Suspect]
     Active Substance: METHAMPHETAMINE
     Indication: PRODUCT USED FOR UNKNOWN INDICATION
     Dosage: UNK
     Route: 065
  3. SUBOXONE [Suspect]
     Active Substance: BUPRENORPHINE HYDROCHLORIDE\NALOXONE HYDROCHLORIDE
     Indication: DRUG DEPENDENCE
     Dosage: 16 MG, QD, ABOUT 6 WEEKS
     Route: 060
     Dates: start: 201603, end: 20160427

REACTIONS (4)
  - Toxicity to various agents [Fatal]
  - Drug abuse [Unknown]
  - Drug diversion [Recovered/Resolved]
  - Overdose [Fatal]

NARRATIVE: CASE EVENT DATE: 20160427
